FAERS Safety Report 24244625 (Version 1)
Quarter: 2024Q3

REPORT INFORMATION
  Report Type: Spontaneous
  Country: US (occurrence: None)
  Receive Date: 20240823
  Receipt Date: 20240823
  Transmission Date: 20241017
  Serious: No
  Sender: EMMAUS LIFE SCIENCES
  Company Number: US-Emmaus Medical, Inc.-EMM202404-000176

PATIENT
  Age: 41 Year
  Sex: Male

DRUGS (3)
  1. ENDARI [Suspect]
     Active Substance: GLUTAMINE
     Indication: Sickle cell disease
     Dosage: 15 G (THREE PACKETS)
     Route: 048
     Dates: start: 2018
  2. ENDARI [Suspect]
     Active Substance: GLUTAMINE
     Dosage: 15 G (THREE PACKETS)
     Route: 048
     Dates: start: 20240312, end: 20240331
  3. ENDARI [Suspect]
     Active Substance: GLUTAMINE
     Dosage: 15 G (THREE PACKETS)
     Route: 048
     Dates: start: 20240404

REACTIONS (3)
  - Viral infection [Unknown]
  - Abdominal pain upper [Recovering/Resolving]
  - Product dose omission issue [Unknown]

NARRATIVE: CASE EVENT DATE: 20240101
